FAERS Safety Report 9379574 (Version 1)
Quarter: 2013Q3

REPORT INFORMATION
  Report Type: Spontaneous
  Country: US (occurrence: US)
  Receive Date: 20130702
  Receipt Date: 20130702
  Transmission Date: 20140515
  Serious: Yes (Hospitalization)
  Sender: FDA-Public Use
  Company Number: US-SANOFI-AVENTIS-2013SA043917

PATIENT
  Age: 72 Year
  Sex: Female

DRUGS (1)
  1. AMBIEN [Suspect]
     Indication: SLEEP DISORDER

REACTIONS (6)
  - Functional gastrointestinal disorder [Unknown]
  - Intestinal obstruction [Unknown]
  - Fall [Unknown]
  - Vertigo [Unknown]
  - Somnolence [Unknown]
  - Therapeutic response decreased [Unknown]
